FAERS Safety Report 6392757-8 (Version None)
Quarter: 2009Q4

REPORT INFORMATION
  Report Type: 
  Country: None (occurrence: None)
  Receive Date: 20091007
  Receipt Date: 20090813
  Transmission Date: 20100525
  Serious: No
  Sender: FDA-Public Use
  Company Number: US-ALLERGAN-0911229US

PATIENT
  Sex: Female

DRUGS (2)
  1. LATISSE [Suspect]
     Indication: HYPOTRICHOSIS
     Dosage: UNK
     Route: 061
  2. SYNTHROID [Concomitant]
     Dosage: 0.25 MG, QD

REACTIONS (1)
  - ERYTHEMA OF EYELID [None]
